FAERS Safety Report 8260761-0 (Version None)
Quarter: 2012Q2

REPORT INFORMATION
  Report Type: 
  Country: None (occurrence: None)
  Receive Date: 20120405
  Receipt Date: 20120330
  Transmission Date: 20120825
  Serious: Yes (Hospitalization)
  Sender: FDA-Public Use
  Company Number: US-BIOGENIDEC-2012BI011332

PATIENT
  Sex: Female

DRUGS (1)
  1. AVONEX [Suspect]
     Indication: MULTIPLE SCLEROSIS
     Route: 030
     Dates: start: 20020428

REACTIONS (6)
  - MIGRAINE [None]
  - CRYING [None]
  - MUSCLE SPASMS [None]
  - MOOD SWINGS [None]
  - HAEMATEMESIS [None]
  - OVARIAN CYST [None]
